FAERS Safety Report 9090451 (Version 2)
Quarter: 2013Q3

REPORT INFORMATION
  Report Type: Spontaneous
  Country: CA (occurrence: CA)
  Receive Date: 20130201
  Receipt Date: 20130904
  Transmission Date: 20140515
  Serious: Yes (Other)
  Sender: FDA-Public Use
  Company Number: CA-ABBOTT-13P-028-1042878-00

PATIENT
  Age: 68 Year
  Sex: Male
  Weight: 80.36 kg

DRUGS (10)
  1. LUPRON DEPOT [Suspect]
     Indication: PROSTATE CANCER
     Dates: start: 20100922
  2. CELEXA [Suspect]
     Indication: INSOMNIA
     Dosage: 20 MG AND 30 MG
     Dates: start: 20100922
  3. CELEXA [Suspect]
     Dosage: 2 TABS AT HS
  4. CLONAZEPAM [Suspect]
     Indication: PRODUCT USED FOR UNKNOWN INDICATION
     Dosage: 1-2 TABLETS AT HS
  5. CLONAZEPAM [Suspect]
     Dosage: 2-3 TABLETS AT HS
  6. LORAZEPAM [Suspect]
     Indication: INSOMNIA
     Dosage: 2 DOSAGE FORMS
     Route: 048
  7. LORAZEPAM [Suspect]
     Dosage: 2-3 TABLETS AT HS
     Route: 048
  8. ZOPICLONE [Suspect]
     Indication: INSOMNIA
     Dosage: 1-2 TABLETS AT HS
  9. ZOPICLONE [Suspect]
     Dosage: 3-5 TABLETS AT HS
  10. BICALUTAMIDE [Suspect]
     Indication: PROSTATIC SPECIFIC ANTIGEN INCREASED
     Dosage: QD

REACTIONS (20)
  - Somnolence [Unknown]
  - Prostate cancer metastatic [Unknown]
  - Arthralgia [Unknown]
  - Pain in extremity [Unknown]
  - Neoplasm skin [Unknown]
  - Accident [Unknown]
  - Fall [Unknown]
  - Intentional drug misuse [Unknown]
  - Memory impairment [Unknown]
  - Road traffic accident [Unknown]
  - Road traffic accident [Unknown]
  - Sciatica [Not Recovered/Not Resolved]
  - Weight increased [Unknown]
  - Fatigue [Unknown]
  - Insomnia [Unknown]
  - Nodule [Unknown]
  - Pain in extremity [Unknown]
  - Prostatic specific antigen increased [Unknown]
  - Arthralgia [Unknown]
  - Hyperphagia [Unknown]
